FAERS Safety Report 21964244 (Version 2)
Quarter: 2023Q1

REPORT INFORMATION
  Report Type: Spontaneous
  Country: PT (occurrence: PT)
  Receive Date: 20230207
  Receipt Date: 20230221
  Transmission Date: 20230418
  Serious: Yes (Hospitalization, Other)
  Sender: FDA-Public Use
  Company Number: PT-FERRINGPH-2023FE00499

PATIENT

DRUGS (3)
  1. ANHYDROUS CITRIC ACID\MAGNESIUM OXIDE\SODIUM PICOSULFATE [Interacting]
     Active Substance: ANHYDROUS CITRIC ACID\MAGNESIUM OXIDE\SODIUM PICOSULFATE
     Indication: Bowel preparation
     Dosage: UNK
     Route: 048
  2. UNSPECIFIED INGREDIENT [Interacting]
     Active Substance: UNSPECIFIED INGREDIENT
     Indication: Depression
     Dosage: UNK
     Route: 065
  3. MAGNESIUM CITRATE [Concomitant]
     Active Substance: MAGNESIUM CITRATE
     Indication: Bowel preparation
     Route: 048

REACTIONS (5)
  - Craniocerebral injury [Unknown]
  - Hyponatraemia [Recovering/Resolving]
  - Generalised tonic-clonic seizure [Unknown]
  - Treatment noncompliance [Recovered/Resolved]
  - Labelled drug-drug interaction medication error [Recovered/Resolved]
